FAERS Safety Report 23609663 (Version 1)
Quarter: 2024Q1

REPORT INFORMATION
  Report Type: Spontaneous
  Country: US (occurrence: US)
  Receive Date: 20240308
  Receipt Date: 20240308
  Transmission Date: 20240409
  Serious: No
  Sender: FDA-Public Use
  Company Number: US-NEURELIS, INC.-2023NEU000070

PATIENT
  Sex: Male

DRUGS (1)
  1. VALTOCO [Suspect]
     Active Substance: DIAZEPAM
     Indication: Seizure cluster
     Dosage: 20 MILLIGRAM, AS NEEDED
     Route: 045
     Dates: start: 20230624, end: 20230625

REACTIONS (4)
  - Tremor [Recovered/Resolved]
  - Psychotic disorder [Recovered/Resolved]
  - Speech disorder [Recovered/Resolved]
  - Withdrawal syndrome [Recovered/Resolved]

NARRATIVE: CASE EVENT DATE: 20230625
